FAERS Safety Report 5546225-3 (Version None)
Quarter: 2007Q4

REPORT INFORMATION
  Report Type: 
  Country: None (occurrence: None)
  Receive Date: 20071211
  Receipt Date: 20071128
  Transmission Date: 20080405
  Serious: Yes (Hospitalization)
  Sender: FDA-Public Use
  Company Number: US-AMGEN-US253180

PATIENT
  Sex: Male

DRUGS (8)
  1. PANITUMUMAB [Suspect]
     Indication: COLORECTAL CANCER
     Route: 042
     Dates: start: 20071010
  2. OXYCONTIN [Concomitant]
     Route: 065
     Dates: start: 20070803
  3. CARDIZEM [Concomitant]
     Route: 065
     Dates: start: 19910101
  4. LANOXIN [Concomitant]
     Route: 065
     Dates: start: 19910101
  5. ATIVAN [Concomitant]
     Route: 065
     Dates: start: 20070803
  6. FLUOROURACIL [Concomitant]
     Route: 065
     Dates: start: 20071010
  7. LEUCOVORIN CALCIUM [Concomitant]
     Route: 065
     Dates: start: 20071010
  8. IRINOTECAN HCL [Concomitant]
     Route: 065
     Dates: start: 20071010

REACTIONS (1)
  - PERIRECTAL ABSCESS [None]
